FAERS Safety Report 13603972 (Version 1)
Quarter: 2017Q2

REPORT INFORMATION
  Report Type: Report from Study
  Country: US (occurrence: US)
  Receive Date: 20170602
  Receipt Date: 20170602
  Transmission Date: 20170830
  Serious: Yes (Other)
  Sender: FDA-Public Use
  Company Number: US-AMGEN-USASL2017082020

PATIENT
  Age: 84 Year
  Sex: Male

DRUGS (1)
  1. REPATHA [Suspect]
     Active Substance: EVOLOCUMAB
     Indication: TYPE V HYPERLIPIDAEMIA
     Dosage: 140 MG/ML,
     Route: 065

REACTIONS (4)
  - Coordination abnormal [Recovering/Resolving]
  - Back pain [Not Recovered/Not Resolved]
  - Amnesia [Recovering/Resolving]
  - Rhinorrhoea [Not Recovered/Not Resolved]
